FAERS Safety Report 4925306-9 (Version None)
Quarter: 2006Q1

REPORT INFORMATION
  Report Type: 
  Country: None (occurrence: None)
  Receive Date: 20060228
  Receipt Date: 20060216
  Transmission Date: 20060701
  Serious: Yes (Hospitalization)
  Sender: FDA-Public Use
  Company Number: FR-GLAXOSMITHKLINE-B0413341A

PATIENT
  Age: 79 Year
  Sex: Male

DRUGS (5)
  1. AUGMENTIN [Suspect]
     Route: 048
     Dates: start: 20050917, end: 20050926
  2. OFLOCET [Suspect]
     Route: 048
     Dates: start: 20050917, end: 20050926
  3. DICYNONE [Suspect]
     Indication: THROMBOTIC THROMBOCYTOPENIC PURPURA
     Dosage: 1500MG PER DAY
     Route: 048
     Dates: start: 20050917, end: 20050928
  4. APROVEL [Concomitant]
     Indication: ESSENTIAL HYPERTENSION
     Dosage: 1UNIT PER DAY
     Route: 048
     Dates: start: 20040315
  5. ALEPSAL [Concomitant]
     Indication: EPILEPSY
     Dosage: 100MG PER DAY
     Route: 048
     Dates: start: 20040315

REACTIONS (11)
  - ACUTE GENERALISED EXANTHEMATOUS PUSTULOSIS [None]
  - CHOLESTASIS [None]
  - GENERALISED ERYTHEMA [None]
  - HYPERGLOBULINAEMIA [None]
  - INFLAMMATION [None]
  - LEUKOCYTOCLASTIC VASCULITIS [None]
  - NORMOCHROMIC NORMOCYTIC ANAEMIA [None]
  - PURPURA [None]
  - RASH PUSTULAR [None]
  - SKIN EXFOLIATION [None]
  - TOXIC SKIN ERUPTION [None]
